FAERS Safety Report 9424865 (Version 1)
Quarter: 2013Q3

REPORT INFORMATION
  Report Type: Spontaneous
  Country: US (occurrence: US)
  Receive Date: 20130729
  Receipt Date: 20130729
  Transmission Date: 20140515
  Serious: No
  Sender: FDA-Public Use
  Company Number: US-PFIZER INC-2013215110

PATIENT
  Sex: 0

DRUGS (2)
  1. IBUPROFEN [Suspect]
     Indication: PAIN
     Dosage: UNK
  2. IBUPROFEN [Suspect]
     Indication: MUSCULOSKELETAL STIFFNESS

REACTIONS (1)
  - Drug ineffective [Unknown]
